FAERS Safety Report 14186649 (Version 1)
Quarter: 2017Q4

REPORT INFORMATION
  Report Type: Spontaneous
  Country: BR (occurrence: BR)
  Receive Date: 20171114
  Receipt Date: 20171114
  Transmission Date: 20180321
  Serious: Yes (Hospitalization)
  Sender: FDA-Public Use
  Company Number: PHHY2017BR167333

PATIENT
  Sex: Female
  Weight: 80 kg

DRUGS (1)
  1. FORASEQ [Suspect]
     Active Substance: BUDESONIDE\FORMOTEROL FUMARATE
     Indication: ASTHMA
     Dosage: 1 DF, BID
     Route: 055

REACTIONS (6)
  - Pain [Unknown]
  - Dyspnoea [Unknown]
  - Weight increased [Unknown]
  - Osteoarthritis [Unknown]
  - Asthma [Unknown]
  - Malaise [Unknown]
